FAERS Safety Report 14102290 (Version 1)
Quarter: 2017Q4

REPORT INFORMATION
  Report Type: Spontaneous
  Country: US (occurrence: US)
  Receive Date: 20171018
  Receipt Date: 20171018
  Transmission Date: 20180321
  Serious: No
  Sender: FDA-Public Use
  Company Number: US-KVK-TECH, INC-2030466

PATIENT
  Sex: Female

DRUGS (5)
  1. OXYCODONE HYDROCHLORIDE. [Suspect]
     Active Substance: OXYCODONE HYDROCHLORIDE
     Indication: PAIN
     Route: 048
     Dates: start: 2016
  2. ATENOLOL. [Concomitant]
     Active Substance: ATENOLOL
     Route: 048
  3. TRAZODONE [Concomitant]
     Active Substance: TRAZODONE HYDROCHLORIDE
     Route: 048
  4. VITAMIN D [Concomitant]
     Active Substance: CHOLECALCIFEROL
     Route: 048
  5. CYMBALTA [Concomitant]
     Active Substance: DULOXETINE HYDROCHLORIDE
     Route: 048

REACTIONS (1)
  - Drug effect variable [Not Recovered/Not Resolved]

NARRATIVE: CASE EVENT DATE: 2016
